FAERS Safety Report 19613405 (Version 1)
Quarter: 2021Q3

REPORT INFORMATION
  Report Type: Spontaneous
  Country: US (occurrence: US)
  Receive Date: 20210725
  Receipt Date: 20210725
  Transmission Date: 20211014
  Serious: No
  Sender: FDA-Public Use
  Company Number: None

PATIENT
  Sex: Male

DRUGS (1)
  1. HUMIRA [Suspect]
     Active Substance: ADALIMUMAB
     Indication: PSORIASIS
     Dosage: 80MG/DAY1,40MGC7THENQOW  80MGDAY 1,40MGD7THERNQOW SQ
     Route: 058
     Dates: start: 20210622

REACTIONS (2)
  - Fatigue [None]
  - Dizziness [None]
